FAERS Safety Report 11773711 (Version 1)
Quarter: 2015Q4

REPORT INFORMATION
  Report Type: Spontaneous
  Country: US (occurrence: US)
  Receive Date: 20151124
  Receipt Date: 20151124
  Transmission Date: 20160304
  Serious: No
  Sender: FDA-Public Use
  Company Number: US-BAYER-2015-469228

PATIENT
  Age: 86 Year
  Sex: Female
  Weight: 59.86 kg

DRUGS (5)
  1. MIRALAX [Suspect]
     Active Substance: POLYETHYLENE GLYCOL 3350
     Indication: CONSTIPATION
     Dosage: 1 DF, PRN
     Route: 048
     Dates: start: 201510
  2. ECOTRIN [Concomitant]
     Active Substance: ASPIRIN
  3. CENTRUM [MINERALS NOS,VITAMINS NOS] [Concomitant]
     Indication: ISCHAEMIC HEART DISEASE PROPHYLAXIS
  4. NIMODIPINE. [Concomitant]
     Active Substance: NIMODIPINE
  5. VITAMIN D [Concomitant]
     Active Substance: CHOLECALCIFEROL

REACTIONS (5)
  - Product use issue [None]
  - Faeces soft [None]
  - Bowel movement irregularity [None]
  - Off label use [None]
  - Product use issue [None]

NARRATIVE: CASE EVENT DATE: 201510
